FAERS Safety Report 8815150 (Version 1)
Quarter: 2012Q4

REPORT INFORMATION
  Report Type: 
  Country: ES (occurrence: ES)
  Receive Date: 20120928
  Receipt Date: 20120928
  Transmission Date: 20130627
  Serious: Yes (Death)
  Sender: FDA-Public Use
  Company Number: ES-ELI_LILLY_AND_COMPANY-ES201209005989

PATIENT
  Sex: Male
  Weight: 65 kg

DRUGS (6)
  1. FORSTEO [Suspect]
     Indication: OSTEOPOROSIS
     Dosage: 20 ug, qd
     Route: 058
     Dates: start: 20120716, end: 20120819
  2. STALEVO [Concomitant]
     Indication: PARKINSON^S DISEASE
     Dosage: 100 DF, qd
     Route: 048
     Dates: end: 20120819
  3. SEROQUEL [Concomitant]
     Indication: PARKINSON^S DISEASE
     Dosage: 50 DF, qd
     Route: 048
  4. PROMETA [Concomitant]
     Indication: PARKINSON^S DISEASE
  5. OMEPRAZOL [Concomitant]
     Indication: GASTRIC DISORDER
     Dosage: UNK
  6. ENANTYUM [Concomitant]
     Indication: PAIN

REACTIONS (1)
  - Death [Fatal]
